FAERS Safety Report 9513456 (Version 1)
Quarter: 2013Q3

REPORT INFORMATION
  Report Type: Spontaneous
  Country: US (occurrence: US)
  Receive Date: 20130910
  Receipt Date: 20130910
  Transmission Date: 20140515
  Serious: No
  Sender: FDA-Public Use
  Company Number: US-TARO-2013P1002373

PATIENT
  Age: 71 Year
  Sex: Female
  Weight: 99.79 kg

DRUGS (13)
  1. WARFARIN SODIUM [Suspect]
     Indication: DEEP VEIN THROMBOSIS
     Route: 048
     Dates: start: 20121111, end: 20121127
  2. WARFARIN SODIUM TABLETS USP 1MG [Suspect]
     Indication: DEEP VEIN THROMBOSIS
     Route: 048
     Dates: start: 20121212, end: 20130103
  3. WARFARIN SODIUM TABLETS USP 1MG [Suspect]
     Indication: DEEP VEIN THROMBOSIS
     Route: 048
     Dates: start: 20130103, end: 20130116
  4. WARFARIN SODIUM TABLETS USP 1MG [Suspect]
     Indication: DEEP VEIN THROMBOSIS
     Route: 048
     Dates: start: 20130118, end: 20130128
  5. WARFARIN SODIUM TABLETS USP 1MG [Suspect]
     Indication: DEEP VEIN THROMBOSIS
     Route: 048
     Dates: start: 20130128, end: 20130211
  6. WARFARIN SODIUM TABLETS USP 1MG [Suspect]
     Indication: DEEP VEIN THROMBOSIS
     Route: 048
     Dates: start: 20130211
  7. WARFARIN SODIUM TABLETS USP 5MG [Suspect]
     Indication: DEEP VEIN THROMBOSIS
     Route: 048
     Dates: start: 20121111, end: 20121201
  8. WARFARIN SODIUM TABLETS USP 5MG [Suspect]
     Indication: DEEP VEIN THROMBOSIS
     Route: 048
     Dates: start: 20121201, end: 20130116
  9. WARFARIN SODIUM TABLETS USP 5MG [Suspect]
     Indication: DEEP VEIN THROMBOSIS
     Route: 048
     Dates: start: 20130118, end: 20130128
  10. DIOVAN [Concomitant]
  11. TOPROL XL [Concomitant]
  12. ALLOPURINOL [Concomitant]
  13. OMEPRAZOLE [Concomitant]

REACTIONS (1)
  - International normalised ratio abnormal [Not Recovered/Not Resolved]
